FAERS Safety Report 8104660-3 (Version None)
Quarter: 2012Q1

REPORT INFORMATION
  Report Type: 
  Country: None (occurrence: None)
  Receive Date: 20120130
  Receipt Date: 20120126
  Transmission Date: 20120608
  Serious: Yes (Death)
  Sender: FDA-Public Use
  Company Number: PHEH2012US002299

PATIENT
  Sex: Female

DRUGS (2)
  1. ZOMETA [Suspect]
  2. CHEMOTHERAPEUTICS [Concomitant]

REACTIONS (1)
  - NEOPLASM MALIGNANT [None]
